FAERS Safety Report 7569256-0 (Version None)
Quarter: 2011Q2

REPORT INFORMATION
  Report Type: 
  Country: None (occurrence: None)
  Receive Date: 20110623
  Receipt Date: 20110617
  Transmission Date: 20111010
  Serious: Yes (Death, Hospitalization, Other)
  Sender: FDA-Public Use
  Company Number: PHHY2011NL04067

PATIENT
  Sex: Male

DRUGS (5)
  1. ZOMETA [Suspect]
     Indication: PROSTATE CANCER METASTATIC
     Dosage: 4 MG PER 28 DAYS
     Route: 042
     Dates: start: 20091019, end: 20110523
  2. ZOMETA [Suspect]
     Dosage: UNK
     Dates: start: 20101224
  3. ZOMETA [Suspect]
     Dosage: UNK, 4MG IN 30 MINUTES
     Dates: start: 20110523
  4. ZOMETA [Suspect]
     Dosage: UNK, 4MG IN 30 MINUTES
     Dates: start: 20110419
  5. ZOMETA [Suspect]
     Dosage: UNK
     Dates: start: 20110118

REACTIONS (8)
  - PROSTATIC SPECIFIC ANTIGEN INCREASED [None]
  - BACK PAIN [None]
  - BONE PAIN [None]
  - EUTHANASIA [None]
  - PAIN IN EXTREMITY [None]
  - METASTASES TO BONE [None]
  - ABDOMINAL PAIN [None]
  - SPINAL CORD DISORDER [None]
